FAERS Safety Report 14535420 (Version 1)
Quarter: 2018Q1

REPORT INFORMATION
  Report Type: Spontaneous
  Country: US (occurrence: US)
  Receive Date: 20180214
  Receipt Date: 20180214
  Transmission Date: 20180509
  Serious: No
  Sender: FDA-Public Use
  Company Number: None

PATIENT
  Sex: Female
  Weight: 47.25 kg

DRUGS (2)
  1. FLUTICASONE. [Suspect]
     Active Substance: FLUTICASONE
     Indication: SINUS DISORDER
     Dosage: ?          QUANTITY:2 SPRAY(S);OTHER ROUTE:INTO EACH NOSTRIL?
     Route: 045
     Dates: start: 20171201, end: 20180214
  2. FLUTICASONE. [Suspect]
     Active Substance: FLUTICASONE
     Indication: SINUS DISORDER
     Dosage: ?          QUANTITY:2 SPRAY(S);OTHER ROUTE:INTO EACH NOSTRIL?
     Route: 045
     Dates: start: 20171201, end: 20180214

REACTIONS (11)
  - Nausea [None]
  - Gingival pain [None]
  - Peripheral swelling [None]
  - Paraesthesia [None]
  - Vision blurred [None]
  - Headache [None]
  - Back pain [None]
  - Incorrect dose administered [None]
  - Chills [None]
  - Rash [None]
  - Throat tightness [None]

NARRATIVE: CASE EVENT DATE: 20171201
